FAERS Safety Report 17722637 (Version 1)
Quarter: 2020Q2

REPORT INFORMATION
  Report Type: Spontaneous
  Country: US (occurrence: US)
  Receive Date: 20200428
  Receipt Date: 20200428
  Transmission Date: 20200714
  Serious: Yes (Disabling)
  Sender: FDA-Public Use
  Company Number: None

PATIENT
  Age: 74 Year
  Sex: Male
  Weight: 65.25 kg

DRUGS (1)
  1. PREDNISOLONE SODIUM PHOSPHATE 1%/ MOXIFLOXACIN 0.5%/ BROMFENAC 0.075% [Suspect]
     Active Substance: BROMFENAC\MOXIFLOXACIN\PREDNISOLONE SODIUM PHOSPHATE
     Indication: CATARACT OPERATION
     Dosage: ?          QUANTITY:1 DROP(S);?
     Route: 047

REACTIONS (4)
  - Visual impairment [None]
  - Vision blurred [None]
  - Eye pain [None]
  - Eye discharge [None]

NARRATIVE: CASE EVENT DATE: 20200301
